FAERS Safety Report 4349511-8 (Version None)
Quarter: 2004Q2

REPORT INFORMATION
  Report Type: 
  Country: None (occurrence: None)
  Receive Date: 20040426
  Receipt Date: 20040412
  Transmission Date: 20050107
  Serious: Yes (Hospitalization, Other)
  Sender: FDA-Public Use
  Company Number: 2004007887

PATIENT
  Age: 89 Year
  Sex: Female
  Weight: 56.246 kg

DRUGS (13)
  1. DILANTIN [Suspect]
     Indication: BLOOD LACTIC ACID
     Dosage: SEE IMAGE
     Route: 048
     Dates: start: 20040122, end: 20040101
  2. DILANTIN [Suspect]
     Indication: BLOOD LACTIC ACID
     Dosage: SEE IMAGE
     Route: 048
     Dates: end: 20040101
  3. UNASYN [Suspect]
     Indication: RESPIRATORY DISTRESS
     Dates: start: 20040121
  4. GATIFLOXACIN [Suspect]
     Indication: RESPIRATORY DISTRESS
     Dates: start: 20040121
  5. PREDNISONE [Suspect]
     Indication: ILL-DEFINED DISORDER
     Dates: end: 20040128
  6. LEVETIRACETAM [Suspect]
     Indication: CONVULSION
     Dosage: 100 MG, (BID)
     Dates: start: 20040101
  7. ANTIBIOTICS (ANTIBIOTICS) [Suspect]
     Indication: ILL-DEFINED DISORDER
  8. AMLODIPINE BESYLATE [Concomitant]
  9. RANITIDINE HYDROCHLORIDE [Concomitant]
  10. ACETYLSALICYLIC ACID SRT [Concomitant]
  11. CENTRUM (VITAMINS NOS, MINERALS NOS) [Concomitant]
  12. VITAMINS (VITAMINS) [Concomitant]
  13. ENSURE (VITAMINS NOS, MINERALS NOS, AMINOACIDS NOS) [Concomitant]

REACTIONS (10)
  - ASTHENIA [None]
  - BLOOD GLUCOSE INCREASED [None]
  - CLOSTRIDIUM COLITIS [None]
  - DIARRHOEA [None]
  - GAZE PALSY [None]
  - HYPOTONIA [None]
  - HYPOVOLAEMIA [None]
  - MUSCULAR WEAKNESS [None]
  - RESPIRATORY DISTRESS [None]
  - VOMITING [None]
